FAERS Safety Report 9200315 (Version 2)
Quarter: 2013Q2

REPORT INFORMATION
  Report Type: Spontaneous
  Country: JP (occurrence: JP)
  Receive Date: 20130329
  Receipt Date: 20130411
  Transmission Date: 20140414
  Serious: No
  Sender: FDA-Public Use
  Company Number: JP-OTSUKA-JP-2013-10739

PATIENT
  Age: 73 Year
  Sex: Male
  Weight: 54 kg

DRUGS (9)
  1. SAMSCA [Suspect]
     Indication: FLUID RETENTION
     Dosage: 3.75 MG MILLIGRAM(S), QD
     Route: 048
     Dates: start: 20130129, end: 20130129
  2. SAMSCA [Suspect]
     Dosage: 7.5 MG MILLIGRAM(S), QD
     Route: 048
     Dates: start: 20130130, end: 20130204
  3. SAMSCA [Suspect]
     Dosage: 15 MG MILLIGRAM(S), QD
     Route: 048
     Dates: start: 20130205, end: 20130214
  4. VFEND [Suspect]
     Indication: BRONCHOPULMONARY ASPERGILLOSIS
     Dosage: 600 MG MILLIGRAM(S), QD
     Route: 048
     Dates: start: 20121228
  5. PREDONINE [Concomitant]
     Indication: INTERSTITIAL LUNG DISEASE
     Dosage: 15 MG MILLIGRAM(S), QD
     Route: 048
     Dates: start: 20130111
  6. TAKEPRON [Concomitant]
     Indication: PROPHYLAXIS AGAINST GASTROINTESTINAL ULCER
     Dosage: 15 MG MILLIGRAM(S), QD
     Route: 048
     Dates: start: 20130111
  7. THYRADIN S [Concomitant]
     Indication: HYPOTHYROIDISM
     Dosage: 25 MCG, QD
     Route: 048
     Dates: start: 20130116
  8. BAKTAR [Concomitant]
     Indication: PROPHYLAXIS
     Dosage: 480 MG MILLIGRAM(S), QD
     Route: 048
     Dates: start: 20130126
  9. ZOSYN [Concomitant]
     Indication: PNEUMONIA BACTERIAL
     Dosage: 4.5 G GRAM(S), BID
     Route: 042
     Dates: start: 20130212, end: 20130225

REACTIONS (1)
  - Thrombocytopenia [Recovered/Resolved]
